FAERS Safety Report 22011815 (Version 1)
Quarter: 2023Q1

REPORT INFORMATION
  Report Type: Report from Study
  Country: US (occurrence: US)
  Receive Date: 20230220
  Receipt Date: 20230220
  Transmission Date: 20230418
  Serious: Yes (Other)
  Sender: FDA-Public Use
  Company Number: US-MYLANLABS-2023M1018825

PATIENT
  Age: 27 Year
  Sex: Male

DRUGS (4)
  1. IBUPROFEN [Suspect]
     Active Substance: IBUPROFEN
     Indication: Symptomatic treatment
     Dosage: UNK
     Route: 065
  2. IBUPROFEN [Suspect]
     Active Substance: IBUPROFEN
     Indication: COVID-19
  3. BENZONATATE [Suspect]
     Active Substance: BENZONATATE
     Indication: Symptomatic treatment
     Dosage: UNK
     Route: 065
  4. BENZONATATE [Suspect]
     Active Substance: BENZONATATE
     Indication: COVID-19

REACTIONS (3)
  - Intentional product misuse [Unknown]
  - Intentional self-injury [Unknown]
  - Toxicity to various agents [Unknown]
